FAERS Safety Report 11482714 (Version 2)
Quarter: 2015Q3

REPORT INFORMATION
  Report Type: Spontaneous
  Country: US (occurrence: US)
  Receive Date: 20150903
  Receipt Date: 20150903
  Transmission Date: 20151125
  Serious: No
  Sender: FDA-Public Use
  Company Number: US-ELI_LILLY_AND_COMPANY-US201204008609

PATIENT
  Age: 62 Year
  Sex: Female

DRUGS (2)
  1. CYMBALTA [Suspect]
     Active Substance: DULOXETINE HYDROCHLORIDE
     Indication: COSTOCHONDRITIS
     Dosage: 30 MG, QD
     Dates: start: 20120410
  2. LEVOTHYROXINE. [Concomitant]
     Active Substance: LEVOTHYROXINE

REACTIONS (10)
  - Yawning [Unknown]
  - Fatigue [Unknown]
  - Feeling of body temperature change [Unknown]
  - Abdominal pain upper [Unknown]
  - Headache [Unknown]
  - Off label use [Not Recovered/Not Resolved]
  - Hypothyroidism [Unknown]
  - Nausea [Unknown]
  - Dry mouth [Unknown]
  - Hyperhidrosis [Unknown]
